APPROVED DRUG PRODUCT: ZEFAZONE IN PLASTIC CONTAINER
Active Ingredient: CEFMETAZOLE SODIUM
Strength: EQ 40MG BASE/ML **Federal Register determination that product was not discontinued or withdrawn for safety or effectiveness reasons**
Dosage Form/Route: INJECTABLE;INJECTION
Application: N050683 | Product #002
Applicant: PHARMACIA AND UPJOHN CO
Approved: Dec 29, 1992 | RLD: Yes | RS: No | Type: DISCN